FAERS Safety Report 16024350 (Version 10)
Quarter: 2020Q2

REPORT INFORMATION
  Report Type: Report from Study
  Country: HU (occurrence: HU)
  Receive Date: 20190301
  Receipt Date: 20200610
  Transmission Date: 20200713
  Serious: Yes (Hospitalization)
  Sender: FDA-Public Use
  Company Number: HU-PFIZER INC-2019077390

PATIENT
  Age: 58 Year
  Sex: Female
  Weight: 63 kg

DRUGS (7)
  1. BEN-U-RON [Concomitant]
     Active Substance: ACETAMINOPHEN
     Indication: HEADACHE
     Dosage: 500 MG, AS NEEDED
     Route: 048
     Dates: start: 201709
  2. PERINDOPRIL [Concomitant]
     Active Substance: PERINDOPRIL
     Indication: HYPERTENSION
     Dosage: 2 MG, EVERY DAY
     Route: 048
     Dates: start: 20181210, end: 20181226
  3. MILGAMMA [BENFOTIAMINE;PYRIDOXINE HYDROCHLORIDE] [Concomitant]
     Indication: DYSAESTHESIA
     Dosage: 1 TABLET, DAILY
     Route: 048
     Dates: start: 20151215
  4. BOSUTINIB [Suspect]
     Active Substance: BOSUTINIB
     Indication: CHRONIC MYELOID LEUKAEMIA
     Dosage: 400 MG, DAILY
     Route: 048
     Dates: start: 20150630, end: 20160620
  5. BOSUTINIB [Suspect]
     Active Substance: BOSUTINIB
     Dosage: 500 MG, DAILY
     Route: 048
     Dates: start: 20160621, end: 20160912
  6. BOSUTINIB [Suspect]
     Active Substance: BOSUTINIB
     Dosage: 600 MG, DAILY
     Route: 048
     Dates: start: 20160913
  7. PERINDOPRIL [Concomitant]
     Active Substance: PERINDOPRIL
     Dosage: 4 MG, EVERY DAY
     Route: 048
     Dates: start: 20181227, end: 20190202

REACTIONS (1)
  - Hypertensive crisis [Recovered/Resolved]

NARRATIVE: CASE EVENT DATE: 20190201
